FAERS Safety Report 10283031 (Version 1)
Quarter: 2014Q3

REPORT INFORMATION
  Report Type: Spontaneous
  Country: ES (occurrence: ES)
  Receive Date: 20140708
  Receipt Date: 20140708
  Transmission Date: 20150326
  Serious: Yes (Death, Other)
  Sender: FDA-Public Use
  Company Number: ES-ACCORD-024494

PATIENT
  Age: 68 Year
  Sex: Male

DRUGS (8)
  1. VORICONAZOLE. [Suspect]
     Active Substance: VORICONAZOLE
     Indication: SCEDOSPORIUM INFECTION
  2. IRON [Concomitant]
     Active Substance: IRON
  3. SULFAMETHOXAZOLE/TRIMETHOPRIM [Concomitant]
  4. OMEPRAZOLE. [Concomitant]
     Active Substance: OMEPRAZOLE
  5. MYCOPHENOLIC ACID [Suspect]
     Active Substance: MYCOPHENOLIC ACID
     Indication: LIVER TRANSPLANT
  6. TACROLIMUS. [Suspect]
     Active Substance: TACROLIMUS
     Indication: LIVER TRANSPLANT
  7. INSULIN [Concomitant]
     Active Substance: INSULIN NOS
  8. DEFLAZACORT [Suspect]
     Active Substance: DEFLAZACORT
     Indication: LIVER TRANSPLANT

REACTIONS (5)
  - Fatigue [Unknown]
  - Scedosporium infection [Recovering/Resolving]
  - Multi-organ failure [Fatal]
  - Neutropenia [Unknown]
  - Pancytopenia [Unknown]
